FAERS Safety Report 9208288 (Version 1)
Quarter: 2013Q2

REPORT INFORMATION
  Report Type: Spontaneous
  Country: US (occurrence: US)
  Receive Date: 20130403
  Receipt Date: 20130403
  Transmission Date: 20140414
  Serious: Yes (Hospitalization)
  Sender: FDA-Public Use
  Company Number: US-B.I. PHARMACEUTICALS,INC./RIDGEFIELD-2013-BI-08656BP

PATIENT
  Age: 81 Year
  Sex: Male
  Weight: 84 kg

DRUGS (1)
  1. DULCOLAX STOOL SOFTENER [Suspect]
     Indication: FAECES HARD
     Route: 048
     Dates: start: 201212

REACTIONS (2)
  - Fall [Recovered/Resolved]
  - Local swelling [Not Recovered/Not Resolved]
